FAERS Safety Report 9833276 (Version 2)
Quarter: 2014Q1

REPORT INFORMATION
  Report Type: Spontaneous
  Country: DE (occurrence: DE)
  Receive Date: 20140121
  Receipt Date: 20140121
  Transmission Date: 20141002
  Serious: Yes (Other)
  Sender: FDA-Public Use
  Company Number: DE-PFIZER INC-2014007224

PATIENT
  Age: 80 Year
  Sex: Male
  Weight: 65 kg

DRUGS (12)
  1. NEURONTIN [Suspect]
     Indication: MUSCLE SPASMS
     Dosage: 3000 MG, 1X/DAY
  2. NEURONTIN [Suspect]
     Dosage: 3000 MG, DAILY, SPLIT INTO 3 DOSES
  3. NEURONTIN [Suspect]
     Dosage: 2700 MG, DAILY
  4. NEURONTIN [Suspect]
     Dosage: 2400 MG, 1X/DAY AT 7PM
  5. VITAMIN B1 [Suspect]
     Indication: MUSCLE SPASMS
     Dosage: 400 MG, UNK
  6. MAGNESIUM [Suspect]
     Indication: MUSCLE SPASMS
     Dosage: UNK
  7. CODIOVAN [Concomitant]
     Dosage: 80/12.5, 1-0-0
  8. ONE-ALPHA [Concomitant]
     Dosage: 0.25MICROGRAM TABLETS
  9. LOESFERRON [Concomitant]
     Indication: MINERAL SUPPLEMENTATION
     Dosage: 1-0-1
     Route: 048
  10. MARCUMAR [Concomitant]
     Dosage: TARGET VALUE INR 2.0-3.0
  11. PANTOZOL [Concomitant]
     Dosage: 20 MG, 1X/DAY, 0-0-1
  12. SIFROL [Concomitant]
     Dosage: 0.088 MG, 1X/DAY, 0-0-0-1
     Route: 002

REACTIONS (6)
  - Off label use [Unknown]
  - Convulsion [Unknown]
  - Conjunctival haemorrhage [Unknown]
  - Weight decreased [Unknown]
  - Oedema peripheral [Unknown]
  - Drug ineffective for unapproved indication [Unknown]
